FAERS Safety Report 9058726 (Version 1)
Quarter: 2013Q1

REPORT INFORMATION
  Report Type: Spontaneous
  Country: US (occurrence: US)
  Receive Date: 20130204
  Receipt Date: 20130204
  Transmission Date: 20140127
  Serious: No
  Sender: FDA-Public Use
  Company Number: US-009507513-1302USA001041

PATIENT
  Age: 87 Year
  Sex: Female

DRUGS (1)
  1. MIRALAX [Suspect]
     Indication: PRODUCT USED FOR UNKNOWN INDICATION
     Dosage: UNK, QD
     Route: 048

REACTIONS (7)
  - Gastrooesophageal reflux disease [Unknown]
  - Nasal congestion [Unknown]
  - Faecal incontinence [Unknown]
  - Feeling abnormal [Unknown]
  - Overdose [Unknown]
  - Incorrect drug administration duration [Unknown]
  - Drug ineffective [Unknown]
